FAERS Safety Report 4649798-8 (Version None)
Quarter: 2005Q2

REPORT INFORMATION
  Report Type: 
  Country: None (occurrence: None)
  Receive Date: 20050502
  Receipt Date: 20050406
  Transmission Date: 20051028
  Serious: Yes (Other)
  Sender: FDA-Public Use
  Company Number: PHHO2005AT05606

PATIENT
  Age: 48 Year
  Sex: Female
  Weight: 76 kg

DRUGS (4)
  1. ZOLEDRONATE [Suspect]
     Indication: BREAST CANCER
     Dosage: 4 MG, UNK
     Route: 042
     Dates: start: 20020920
  2. ZOLEDRONATE [Suspect]
     Dosage: 4 MG, UNK
     Route: 042
     Dates: start: 20040916
  3. NOLVADEX [Concomitant]
     Indication: BREAST CANCER
     Dosage: 20 MG, QD
     Route: 048
     Dates: start: 20020920
  4. ZOLADEX [Concomitant]
     Indication: BREAST CANCER
     Dosage: 3.6 MG, QMO
     Route: 058
     Dates: start: 20020920

REACTIONS (4)
  - ASEPTIC NECROSIS BONE [None]
  - GINGIVAL INFECTION [None]
  - TOOTH EXTRACTION [None]
  - TOOTH INFECTION [None]
